FAERS Safety Report 7309292-2 (Version None)
Quarter: 2011Q1

REPORT INFORMATION
  Report Type: 
  Country: None (occurrence: None)
  Receive Date: 20110223
  Receipt Date: 20110216
  Transmission Date: 20110831
  Serious: Yes (Disabling)
  Sender: FDA-Public Use
  Company Number: GB-ROCHE-760085

PATIENT
  Age: 45 Year
  Sex: Female

DRUGS (6)
  1. PREDNISOLONE [Concomitant]
     Route: 048
  2. RISEDRONATE [Concomitant]
     Indication: OSTEOPOROSIS PROPHYLAXIS
     Route: 048
  3. METHOTREXATE [Concomitant]
     Route: 058
  4. LANSOPRAZOLE [Concomitant]
     Route: 048
  5. WARFARIN [Concomitant]
     Route: 048
  6. ROACTEMRA [Suspect]
     Route: 042
     Dates: start: 20091201

REACTIONS (1)
  - LIGAMENT RUPTURE [None]
